FAERS Safety Report 5783166-0 (Version None)
Quarter: 2008Q2

REPORT INFORMATION
  Report Type: 
  Country: None (occurrence: None)
  Receive Date: 20080619
  Receipt Date: 20080606
  Transmission Date: 20081010
  Serious: Yes (Death, Hospitalization)
  Sender: FDA-Public Use
  Company Number: A-US2008-20838

PATIENT
  Age: 53 Year
  Sex: Female

DRUGS (1)
  1. TRACLEER [Suspect]
     Indication: DRUG USE FOR UNKNOWN INDICATION
     Dosage: 125 MG, BID, ORAL
     Route: 048
     Dates: start: 20031001

REACTIONS (3)
  - CEREBROVASCULAR ACCIDENT [None]
  - DISEASE COMPLICATION [None]
  - PNEUMONIA [None]
